FAERS Safety Report 6129047-4 (Version None)
Quarter: 2009Q1

REPORT INFORMATION
  Report Type: 
  Country: None (occurrence: None)
  Receive Date: 20090324
  Receipt Date: 20090316
  Transmission Date: 20090719
  Serious: Yes (Other)
  Sender: FDA-Public Use
  Company Number: SE-JNJFOC-20090303883

PATIENT
  Age: 30 Year
  Sex: Male

DRUGS (3)
  1. CONCERTA [Suspect]
     Indication: DRUG USE FOR UNKNOWN INDICATION
     Route: 048
  2. BRICANYL [Concomitant]
     Route: 065
  3. PULMICORT-100 [Concomitant]
     Route: 065

REACTIONS (2)
  - BLOOD PROLACTIN INCREASED [None]
  - GYNAECOMASTIA [None]
